FAERS Safety Report 5652393-5 (Version None)
Quarter: 2008Q1

REPORT INFORMATION
  Report Type: 
  Country: None (occurrence: None)
  Receive Date: 20080131
  Receipt Date: 20071111
  Transmission Date: 20080703
  Serious: No
  Sender: FDA-Public Use
  Company Number: US200711002613

PATIENT
  Sex: Female
  Weight: 73.9 kg

DRUGS (2)
  1. BYETTA [Suspect]
     Indication: TYPE 2 DIABETES MELLITUS
     Dosage: 10 UG, 2/D, SUBCUTANEOUS ; 20 UG, OTHER, SUBCUTANEOUS
     Route: 058
     Dates: start: 20071111, end: 20071111
  2. METFORMIN HCL [Concomitant]

REACTIONS (1)
  - INCORRECT DOSE ADMINISTERED [None]
